FAERS Safety Report 6786209-0 (Version None)
Quarter: 2010Q2

REPORT INFORMATION
  Report Type: 
  Country: None (occurrence: None)
  Receive Date: 20100623
  Receipt Date: 20100621
  Transmission Date: 20101027
  Serious: Yes (Other)
  Sender: FDA-Public Use
  Company Number: KP-ROXANE LABORATORIES, INC.-2010-RO-00740RO

PATIENT
  Age: 15 Year
  Sex: Female

DRUGS (9)
  1. CYCLOPHOSPHAMIDE [Suspect]
     Indication: BONE MARROW CONDITIONING REGIMEN
     Route: 042
  2. METHOTREXATE [Suspect]
     Indication: PROPHYLAXIS AGAINST GRAFT VERSUS HOST DISEASE
     Route: 042
  3. BUSULFEX [Suspect]
     Indication: BONE MARROW CONDITIONING REGIMEN
     Route: 042
  4. CYCLOSPORINE [Suspect]
     Indication: PROPHYLAXIS AGAINST GRAFT VERSUS HOST DISEASE
     Route: 042
  5. NADROPARIN [Suspect]
     Indication: PROPHYLAXIS
     Route: 042
  6. EGLANDIN [Suspect]
     Indication: PROPHYLAXIS
     Route: 042
  7. NORMAL SALINE [Suspect]
     Route: 042
  8. NORMAL SALINE [Suspect]
     Route: 042
  9. METHYLPREDNISOLONE ACETATE [Suspect]

REACTIONS (3)
  - FLUID OVERLOAD [None]
  - GRAND MAL CONVULSION [None]
  - REVERSIBLE POSTERIOR LEUKOENCEPHALOPATHY SYNDROME [None]
